FAERS Safety Report 6333945-6 (Version None)
Quarter: 2009Q3

REPORT INFORMATION
  Report Type: 
  Country: None (occurrence: None)
  Receive Date: 20090829
  Receipt Date: 20090629
  Transmission Date: 20100115
  Serious: No
  Sender: FDA-Public Use
  Company Number: US-ABBOTT-09P-163-0582863-00

PATIENT
  Sex: Female
  Weight: 68.1 kg

DRUGS (7)
  1. SIMCOR [Suspect]
     Indication: BLOOD TRIGLYCERIDES INCREASED
     Dosage: 500/20 MILLIGRAM
     Dates: start: 20090615, end: 20090623
  2. ACIPHEX [Concomitant]
     Indication: DRUG USE FOR UNKNOWN INDICATION
  3. PREMARIN [Concomitant]
     Indication: DRUG USE FOR UNKNOWN INDICATION
  4. TRAZODONE HCL [Concomitant]
     Indication: DRUG USE FOR UNKNOWN INDICATION
  5. GABAPENTIN [Concomitant]
     Indication: DRUG USE FOR UNKNOWN INDICATION
  6. TOPROL-XL [Concomitant]
     Indication: DRUG USE FOR UNKNOWN INDICATION
  7. ASPIRIN [Concomitant]
     Indication: DRUG USE FOR UNKNOWN INDICATION

REACTIONS (3)
  - DIZZINESS [None]
  - FALL [None]
  - NAUSEA [None]
